FAERS Safety Report 7483485-6 (Version None)
Quarter: 2011Q2

REPORT INFORMATION
  Report Type: 
  Country: None (occurrence: None)
  Receive Date: 20110517
  Receipt Date: 20110427
  Transmission Date: 20111010
  Serious: Yes (Death)
  Sender: FDA-Public Use
  Company Number: CA-JNJFOC-20110500776

PATIENT

DRUGS (1)
  1. RISPERIDONE [Suspect]
     Indication: TOURETTE'S DISORDER
     Route: 065

REACTIONS (3)
  - COMPLETED SUICIDE [None]
  - MAJOR DEPRESSION [None]
  - OFF LABEL USE [None]
